FAERS Safety Report 6204257-6 (Version None)
Quarter: 2009Q2

REPORT INFORMATION
  Report Type: 
  Country: None (occurrence: None)
  Receive Date: 20090518
  Receipt Date: 20090205
  Transmission Date: 20091009
  Serious: No
  Sender: FDA-Public Use
  Company Number: WAES 0902USA00889

PATIENT
  Age: 60 Year
  Sex: Male

DRUGS (1)
  1. JANUVIA [Suspect]
     Indication: DIABETES MELLITUS
     Dosage: 100 MG/DAILY/PO : 50 MG/DAILY/PO
     Route: 048
     Dates: start: 20080801, end: 20080901

REACTIONS (3)
  - ANOREXIA [None]
  - HEADACHE [None]
  - NAUSEA [None]
